FAERS Safety Report 9494786 (Version 3)
Quarter: 2013Q4

REPORT INFORMATION
  Report Type: Spontaneous
  Country: US (occurrence: US)
  Receive Date: 20130903
  Receipt Date: 20131204
  Transmission Date: 20140711
  Serious: No
  Sender: FDA-Public Use
  Company Number: US-PFIZER INC-2013250001

PATIENT
  Age: 63 Year
  Sex: Male

DRUGS (8)
  1. SOMAVERT [Suspect]
     Indication: HYPOTHALAMO-PITUITARY DISORDER
     Dosage: 10 MG, 1X/DAY
     Route: 058
     Dates: start: 2006
  2. LOTREL [Concomitant]
     Dosage: 1 DF (10-40), 1X/DAY
  3. HYDROCHLOROTHIAZIDE [Concomitant]
     Dosage: 25 MG, 1X/DAY (1)
  4. IBUPROFEN [Concomitant]
     Dosage: 800, AS NEEDED
  5. LEVOTHYROXINE [Concomitant]
     Dosage: 175 UG, 1X/DAY
  6. METFORMIN [Concomitant]
     Dosage: 500, 2X/DAY
  7. DEPO-TESTOSTERONE [Concomitant]
     Dosage: 200 MG, Q2WK
     Route: 030
  8. KCL [Concomitant]
     Dosage: 20 MEQ, 1X/DAY (1 QD)

REACTIONS (2)
  - Arthritis [Unknown]
  - Musculoskeletal pain [Unknown]
